FAERS Safety Report 4650316-9 (Version None)
Quarter: 2005Q2

REPORT INFORMATION
  Report Type: 
  Country: None (occurrence: None)
  Receive Date: 20050429
  Receipt Date: 20050420
  Transmission Date: 20051028
  Serious: Yes (Other)
  Sender: FDA-Public Use
  Company Number: 2004116110

PATIENT
  Sex: Female
  Weight: 65.6 kg

DRUGS (6)
  1. EPIRUBICIN [Suspect]
     Indication: BREAST CANCER
     Dosage: 120 MG
     Dates: start: 20040923, end: 20041125
  2. CYCLOPHOSPHAMIDE [Suspect]
     Indication: BREAST CANCER
     Dosage: 1930 MG
     Dates: start: 20040923, end: 20041125
  3. FLUOROURACIL [Suspect]
     Indication: BREAST CANCER
     Dosage: 970 MG
     Dates: start: 20040923, end: 20041125
  4. FILGRASTIM (FILGRASTIM) [Concomitant]
  5. CIPROFLOXACIN [Concomitant]
  6. VALACYCLOVIR HCL [Concomitant]

REACTIONS (1)
  - HEPATOTOXICITY [None]
